FAERS Safety Report 6214033-6 (Version None)
Quarter: 2009Q2

REPORT INFORMATION
  Report Type: 
  Country: None (occurrence: None)
  Receive Date: 20090604
  Receipt Date: 20090528
  Transmission Date: 20091009
  Serious: Yes (Hospitalization, Other)
  Sender: FDA-Public Use
  Company Number: US-JNJFOC-20081201371

PATIENT
  Sex: Male
  Weight: 117.94 kg

DRUGS (4)
  1. RISPERIDONE [Suspect]
     Route: 048
  2. RISPERIDONE [Suspect]
     Indication: BIPOLAR DISORDER
     Dosage: 2 OR 3 MG TABLETS
     Route: 048
  3. GENERAL ANESTHESIA, UNSPECIFIED [Suspect]
     Indication: DRUG USE FOR UNKNOWN INDICATION
     Route: 065
  4. VISTARIL [Concomitant]
     Indication: ANXIETY
     Route: 048

REACTIONS (9)
  - MENTAL DISORDER [None]
  - MYALGIA [None]
  - NERVE INJURY [None]
  - NERVOUS SYSTEM DISORDER [None]
  - OSTEOARTHRITIS [None]
  - PARKINSONISM [None]
  - PSYCHOMOTOR HYPERACTIVITY [None]
  - SHOULDER OPERATION [None]
  - SLEEP DISORDER [None]
